FAERS Safety Report 8189357-6 (Version None)
Quarter: 2012Q1

REPORT INFORMATION
  Report Type: 
  Country: None (occurrence: None)
  Receive Date: 20120307
  Receipt Date: 20120229
  Transmission Date: 20120608
  Serious: Yes (Life-Threatening, Other)
  Sender: FDA-Public Use
  Company Number: FR-GENZYME-CAMP-1002146

PATIENT
  Age: 60 Year
  Sex: Male

DRUGS (11)
  1. NEORAL [Suspect]
     Indication: IMMUNOSUPPRESSION
     Dosage: 100 MG, QD
     Route: 065
  2. MYFORTIC [Suspect]
     Indication: IMMUNOSUPPRESSION
  3. CERTICAN [Suspect]
     Dosage: 0.25 MG, BID
     Route: 048
  4. MABTHERA [Suspect]
     Indication: ACUTE MYELOID LEUKAEMIA
     Dosage: UNK
     Route: 042
     Dates: start: 20110701, end: 20110701
  5. MABTHERA [Suspect]
     Dosage: UNK
     Route: 042
  6. NEORAL [Suspect]
     Indication: ACUTE MYELOID LEUKAEMIA
     Dosage: 160 MG, QD
     Route: 065
     Dates: start: 20110301, end: 20110601
  7. PROGRAF [Suspect]
     Indication: GRAFT VERSUS HOST DISEASE IN SKIN
     Dosage: UNK
     Route: 065
  8. CAMPATH [Suspect]
     Indication: ACUTE MYELOID LEUKAEMIA
     Dosage: UNK
     Route: 042
     Dates: start: 20110729, end: 20110801
  9. CAMPATH [Suspect]
     Dosage: UNK
     Route: 042
     Dates: start: 20110811
  10. CERTICAN [Suspect]
     Indication: ACUTE MYELOID LEUKAEMIA
     Dosage: 0.5 MG, BID
     Route: 048
     Dates: start: 20110601, end: 20110801
  11. MYFORTIC [Suspect]
     Indication: PRODUCT USED FOR UNKNOWN INDICATION
     Dosage: 750 MG, TID
     Route: 048
     Dates: start: 20110301, end: 20110601

REACTIONS (7)
  - LYMPHOMA [None]
  - EPSTEIN-BARR VIRAEMIA [None]
  - CYTOMEGALOVIRUS INFECTION [None]
  - TUBERCULOSIS [None]
  - PSEUDOMEMBRANOUS COLITIS [None]
  - PANCYTOPENIA [None]
  - GRAFT VERSUS HOST DISEASE [None]
